FAERS Safety Report 17480689 (Version 1)
Quarter: 2020Q1

REPORT INFORMATION
  Report Type: Spontaneous
  Country: US (occurrence: US)
  Receive Date: 20200301
  Receipt Date: 20200301
  Transmission Date: 20200409
  Serious: No
  Sender: FDA-Public Use
  Company Number: US-AMGEN-USASP2020033126

PATIENT
  Sex: Male

DRUGS (3)
  1. NPLATE [Suspect]
     Active Substance: ROMIPLOSTIM
     Dosage: 5 UNK
     Route: 065
  2. NPLATE [Suspect]
     Active Substance: ROMIPLOSTIM
     Indication: IMMUNE THROMBOCYTOPENIC PURPURA
     Dosage: STARTED AT 2.5 MICROGRAM/KILOGRAM UP TO 4MCG/KG
     Route: 065
     Dates: start: 202002
  3. NPLATE [Suspect]
     Active Substance: ROMIPLOSTIM
     Dosage: STARTED AT 2.5 MICROGRAM/KILOGRAM UP TO 4MCG/KG
     Route: 065

REACTIONS (1)
  - Pain in extremity [Not Recovered/Not Resolved]
